FAERS Safety Report 8163749-3 (Version None)
Quarter: 2012Q1

REPORT INFORMATION
  Report Type: 
  Country: None (occurrence: None)
  Receive Date: 20120224
  Receipt Date: 20120216
  Transmission Date: 20120608
  Serious: Yes (Other)
  Sender: FDA-Public Use
  Company Number: PHFR2011GB04086

PATIENT
  Sex: Male

DRUGS (7)
  1. CLOZARIL [Suspect]
     Indication: SCHIZOPHRENIA
     Dosage: 275 MG, UNK
     Route: 048
     Dates: start: 20070910
  2. SIMVASTATIN [Concomitant]
  3. BISOPROLOL FUMARATE [Concomitant]
  4. LANSOPRAZOLE [Concomitant]
  5. HYOSCINE [Concomitant]
     Indication: SALIVARY HYPERSECRETION
     Dosage: 300 MG, UNK
     Route: 048
     Dates: start: 20080101
  6. AMISULPRIDE [Suspect]
     Dosage: 400 MG, UNK
     Dates: start: 20080101
  7. METFORMIN HCL [Concomitant]

REACTIONS (3)
  - THROMBOCYTOPENIA [None]
  - PLATELET COUNT DECREASED [None]
  - HEPATITIS B [None]
